FAERS Safety Report 25210575 (Version 1)
Quarter: 2025Q2

REPORT INFORMATION
  Report Type: Spontaneous
  Country: US (occurrence: US)
  Receive Date: 20250417
  Receipt Date: 20250417
  Transmission Date: 20250716
  Serious: Yes (Hospitalization)
  Sender: MYLAN
  Company Number: US-MYLANLABS-2025M1032999

PATIENT
  Age: 13 Year
  Sex: Female

DRUGS (16)
  1. METHOTREXATE [Suspect]
     Active Substance: METHOTREXATE
     Indication: Acute lymphocytic leukaemia
  2. METHOTREXATE [Suspect]
     Active Substance: METHOTREXATE
     Route: 037
  3. METHOTREXATE [Suspect]
     Active Substance: METHOTREXATE
     Route: 037
  4. METHOTREXATE [Suspect]
     Active Substance: METHOTREXATE
  5. LEUCOVORIN [Suspect]
     Active Substance: LEUCOVORIN\LEUCOVORIN CALCIUM
     Indication: Neurotoxicity
  6. LEUCOVORIN [Suspect]
     Active Substance: LEUCOVORIN\LEUCOVORIN CALCIUM
     Indication: Leukoencephalopathy
     Route: 065
  7. LEUCOVORIN [Suspect]
     Active Substance: LEUCOVORIN\LEUCOVORIN CALCIUM
     Route: 065
  8. LEUCOVORIN [Suspect]
     Active Substance: LEUCOVORIN\LEUCOVORIN CALCIUM
  9. DEXTROMETHORPHAN [Suspect]
     Active Substance: DEXTROMETHORPHAN
     Indication: Neurotoxicity
  10. DEXTROMETHORPHAN [Suspect]
     Active Substance: DEXTROMETHORPHAN
     Indication: Leukoencephalopathy
     Route: 065
  11. DEXTROMETHORPHAN [Suspect]
     Active Substance: DEXTROMETHORPHAN
     Route: 065
  12. DEXTROMETHORPHAN [Suspect]
     Active Substance: DEXTROMETHORPHAN
  13. AMINOPHYLLINE [Suspect]
     Active Substance: AMINOPHYLLINE
     Indication: Neurotoxicity
  14. AMINOPHYLLINE [Suspect]
     Active Substance: AMINOPHYLLINE
     Indication: Leukoencephalopathy
     Route: 065
  15. AMINOPHYLLINE [Suspect]
     Active Substance: AMINOPHYLLINE
     Route: 065
  16. AMINOPHYLLINE [Suspect]
     Active Substance: AMINOPHYLLINE

REACTIONS (3)
  - Neurotoxicity [Recovering/Resolving]
  - Leukoencephalopathy [Recovering/Resolving]
  - Drug ineffective [Unknown]
